FAERS Safety Report 6418300-2 (Version None)
Quarter: 2009Q4

REPORT INFORMATION
  Report Type: 
  Country: None (occurrence: None)
  Receive Date: 20091021
  Receipt Date: 20090616
  Transmission Date: 20100525
  Serious: No
  Sender: FDA-Public Use
  Company Number: ALL1-2009-01653

PATIENT
  Sex: Female
  Weight: 63.5 kg

DRUGS (5)
  1. VYVANSE [Suspect]
     Indication: APATHY
     Dosage: 30 MG, 1X/DAY;QD, ORAL
     Route: 048
     Dates: start: 20090501
  2. VYVANSE [Suspect]
     Indication: DEPRESSION
     Dosage: 30 MG, 1X/DAY;QD, ORAL
     Route: 048
     Dates: start: 20090501
  3. VYVANSE [Suspect]
     Indication: MOOD SWINGS
     Dosage: 30 MG, 1X/DAY;QD, ORAL
     Route: 048
     Dates: start: 20090501
  4. ZYRTEC [Concomitant]
  5. SOLODYN (MINOCYCLINE HYDROCHLORIDE) [Concomitant]

REACTIONS (2)
  - DRUG DIVERSION [None]
  - OFF LABEL USE [None]
